FAERS Safety Report 6219791-2 (Version None)
Quarter: 2009Q2

REPORT INFORMATION
  Report Type: 
  Country: None (occurrence: None)
  Receive Date: 20090609
  Receipt Date: 20090530
  Transmission Date: 20091009
  Serious: Yes (Hospitalization)
  Sender: FDA-Public Use
  Company Number: B0577247A

PATIENT
  Sex: Male

DRUGS (3)
  1. SERETIDE [Suspect]
     Indication: ASTHMA
     Dosage: 250MCG TWICE PER DAY
     Route: 055
     Dates: start: 20080722
  2. SULTANOL [Suspect]
     Indication: ASTHMA
     Dosage: 100MCG PER DAY
     Route: 055
  3. METFORMIN HYDROCHLORIDE [Suspect]
     Indication: DIABETES MELLITUS
     Route: 048

REACTIONS (2)
  - CHOLECYSTITIS [None]
  - CHOLELITHIASIS [None]
